FAERS Safety Report 4592331-X (Version None)
Quarter: 2005Q1

REPORT INFORMATION
  Report Type: 
  Country: None (occurrence: None)
  Receive Date: 20050228
  Receipt Date: 20041209
  Transmission Date: 20050727
  Serious: No
  Sender: FDA-Public Use
  Company Number: US-BRISTOL-MYERS SQUIBB COMPANY-12790499

PATIENT

DRUGS (1)
  1. ABILIFY [Suspect]

REACTIONS (1)
  - TARDIVE DYSKINESIA [None]
